FAERS Safety Report 5391663-5 (Version None)
Quarter: 2007Q3

REPORT INFORMATION
  Report Type: 
  Country: None (occurrence: None)
  Receive Date: 20070719
  Receipt Date: 20070706
  Transmission Date: 20080115
  Serious: Yes (Hospitalization)
  Sender: FDA-Public Use
  Company Number: US-SHR-US-2006-034570

PATIENT
  Age: 78 Year
  Sex: Male
  Weight: 68 kg

DRUGS (4)
  1. BETAPACE [Suspect]
     Indication: ATRIAL FIBRILLATION
     Dosage: 90 MG, 2X/DAY
     Route: 048
     Dates: start: 20060101
  2. BETAPACE [Suspect]
     Dosage: 160 MG/D, UNK
     Route: 048
     Dates: start: 20040101, end: 20060101
  3. COUMADIN [Concomitant]
     Dosage: 2.5 MG, UNK
     Dates: start: 19960101
  4. SYNTHROID [Concomitant]
     Dosage: .01 MG, UNK
     Dates: start: 19960101

REACTIONS (1)
  - BLOOD SODIUM DECREASED [None]
